FAERS Safety Report 6334815-X (Version None)
Quarter: 2009Q3

REPORT INFORMATION
  Report Type: 
  Country: None (occurrence: None)
  Receive Date: 20090831
  Receipt Date: 20090824
  Transmission Date: 20100115
  Serious: Yes (Other)
  Sender: FDA-Public Use
  Company Number: IE-BAYER-200927279GPV

PATIENT
  Age: 21 Year
  Sex: Male

DRUGS (1)
  1. AVELOX [Suspect]
     Indication: CELLULITIS
     Route: 042
     Dates: start: 20090716

REACTIONS (5)
  - FEELING COLD [None]
  - HYPOAESTHESIA [None]
  - INJECTION SITE ERYTHEMA [None]
  - INJECTION SITE REACTION [None]
  - PAIN [None]
